FAERS Safety Report 13824901 (Version 1)
Quarter: 2017Q3

REPORT INFORMATION
  Report Type: Spontaneous
  Country: US (occurrence: US)
  Receive Date: 20170802
  Receipt Date: 20170802
  Transmission Date: 20171127
  Serious: Yes (Other)
  Sender: FDA-Public Use
  Company Number: None

PATIENT
  Age: 82 Year
  Sex: Female
  Weight: 67.13 kg

DRUGS (8)
  1. ALPRAZOLAM. [Concomitant]
     Active Substance: ALPRAZOLAM
  2. VITAMIN D3 [Concomitant]
     Active Substance: CHOLECALCIFEROL
  3. POTASSIUM [Concomitant]
     Active Substance: POTASSIUM
  4. ASPIRIN. [Concomitant]
     Active Substance: ASPIRIN
  5. GABAPENTIN 300MG CAP ACT [Suspect]
     Active Substance: GABAPENTIN
     Indication: MUSCLE SPASMS
     Dosage: 1 EVENING ONCE DAILY BY MOUTH
     Route: 048
     Dates: start: 201503
  6. DILTIAZEM. [Concomitant]
     Active Substance: DILTIAZEM
  7. SIMVASTATIN. [Concomitant]
     Active Substance: SIMVASTATIN
  8. VALSARTAN. [Concomitant]
     Active Substance: VALSARTAN

REACTIONS (3)
  - Dizziness [None]
  - Vertigo [None]
  - Vomiting [None]

NARRATIVE: CASE EVENT DATE: 20170704
